FAERS Safety Report 24995718 (Version 1)
Quarter: 2025Q1

REPORT INFORMATION
  Report Type: Spontaneous
  Country: US (occurrence: None)
  Receive Date: 20250221
  Receipt Date: 20250221
  Transmission Date: 20250409
  Serious: Yes (Death)
  Sender: FDA-CTU
  Company Number: None

PATIENT
  Age: 38 Year
  Sex: Male
  Weight: 86.5 kg

DRUGS (17)
  1. CEFTRIAXONE [Suspect]
     Active Substance: CEFTRIAXONE
     Indication: Cholecystitis
     Dosage: FREQUENCY : DAILY;?
     Route: 042
     Dates: start: 20241113, end: 20241113
  2. CALCIUM GLUCONATE [Concomitant]
     Active Substance: CALCIUM GLUCONATE
     Dates: start: 20241112, end: 20241113
  3. DEXAMETHASONE [Concomitant]
     Active Substance: DEXAMETHASONE
     Dates: start: 20241113, end: 20241113
  4. DOCUSATE SODIUM [Concomitant]
     Active Substance: DOCUSATE SODIUM
     Dates: start: 20241112, end: 20241113
  5. ENOXAPARIN [Concomitant]
     Active Substance: ENOXAPARIN
     Dates: start: 20241112, end: 20241113
  6. HYDROMORPHONE [Concomitant]
     Active Substance: HYDROMORPHONE
     Dates: start: 20241112, end: 20241113
  7. ISOVUE [Concomitant]
     Active Substance: IOPAMIDOL
     Dates: start: 20241112, end: 20241112
  8. METOCLOPRAMIDE [Concomitant]
     Active Substance: METOCLOPRAMIDE
     Dates: start: 20241112, end: 20241113
  9. METRONIDAZOLE [Concomitant]
     Active Substance: METRONIDAZOLE
     Dates: start: 20241113, end: 20241113
  10. MORPHINE [Concomitant]
     Active Substance: MORPHINE
     Dates: start: 20241112, end: 20241113
  11. ONDANSETRON [Concomitant]
     Active Substance: ONDANSETRON
     Dates: start: 20241112, end: 20241113
  12. PANTOPRAZOLE [Concomitant]
     Active Substance: PANTOPRAZOLE
     Dates: start: 20241113, end: 20241113
  13. phosphorus K phos tab [Concomitant]
     Dates: start: 20241113, end: 20241113
  14. ZOSYN [Concomitant]
     Active Substance: PIPERACILLIN SODIUM\TAZOBACTAM SODIUM
     Dates: start: 20241112, end: 20241113
  15. POTASSIUM CHLORIDE [Concomitant]
     Active Substance: POTASSIUM CHLORIDE
     Dates: start: 20241113, end: 20241113
  16. SODIUM PHOSPHATE [Concomitant]
     Active Substance: SODIUM PHOSPHATE
     Dates: start: 20241112, end: 20241112
  17. VANCOMYCIN [Concomitant]
     Active Substance: VANCOMYCIN
     Dates: start: 20241112, end: 20241112

REACTIONS (9)
  - Dizziness [None]
  - Anxiety [None]
  - Flushing [None]
  - Vomiting [None]
  - Bradycardia [None]
  - Pulseless electrical activity [None]
  - Nonspecific reaction [None]
  - Anaphylactic reaction [None]
  - Disseminated intravascular coagulation [None]

NARRATIVE: CASE EVENT DATE: 20241113
